FAERS Safety Report 11118014 (Version 1)
Quarter: 2015Q2

REPORT INFORMATION
  Report Type: Spontaneous
  Country: US (occurrence: None)
  Receive Date: 20150514
  Receipt Date: 20150514
  Transmission Date: 20150821
  Serious: No
  Sender: FDA-Public Use
  Company Number: SOM-3374-AE

PATIENT
  Age: 68 Year
  Sex: Female

DRUGS (4)
  1. TYLENOL PM [Concomitant]
     Active Substance: ACETAMINOPHEN\DIPHENHYDRAMINE
  2. SF 5000 PLUS [Suspect]
     Active Substance: SODIUM FLUORIDE
     Indication: DENTAL CARE
     Dosage: TOPICAL ON TEETH
     Route: 004
     Dates: start: 20150509, end: 20150511
  3. INHALER [Concomitant]
     Active Substance: UNSPECIFIED INGREDIENT
  4. SF 5000 PLUS [Suspect]
     Active Substance: SODIUM FLUORIDE
     Indication: DENTAL CARIES
     Dosage: TOPICAL ON TEETH
     Route: 004
     Dates: start: 20150509, end: 20150511

REACTIONS (1)
  - Oral pain [None]

NARRATIVE: CASE EVENT DATE: 20150509
